FAERS Safety Report 17676263 (Version 3)
Quarter: 2020Q2

REPORT INFORMATION
  Report Type: Report from Study
  Country: US (occurrence: US)
  Receive Date: 20200416
  Receipt Date: 20200610
  Transmission Date: 20200714
  Serious: No
  Sender: FDA-Public Use
  Company Number: NVSC2020US102261

PATIENT
  Sex: Female

DRUGS (2)
  1. PIQRAY [Suspect]
     Active Substance: ALPELISIB
     Indication: PRODUCT USED FOR UNKNOWN INDICATION
     Route: 048
  2. PIQRAY [Suspect]
     Active Substance: ALPELISIB
     Route: 048

REACTIONS (8)
  - Nausea [Unknown]
  - Fatigue [Unknown]
  - Mouth ulceration [Unknown]
  - Dysphagia [Unknown]
  - Asthenia [Unknown]
  - Oral pain [Unknown]
  - Oropharyngeal pain [Unknown]
  - Diarrhoea [Unknown]
